FAERS Safety Report 16793034 (Version 1)
Quarter: 2019Q3

REPORT INFORMATION
  Report Type: Spontaneous
  Country: US (occurrence: US)
  Receive Date: 20190911
  Receipt Date: 20190911
  Transmission Date: 20191005
  Serious: No
  Sender: FDA-Public Use
  Company Number: US-CELGENEUS-USA-20190901370

PATIENT
  Sex: Female

DRUGS (6)
  1. OTEZLA [Suspect]
     Active Substance: APREMILAST
     Indication: PSORIASIS
     Dosage: 10 MILLIGRAM (DAY1)
     Route: 048
     Dates: start: 20190814, end: 20190814
  2. OTEZLA [Suspect]
     Active Substance: APREMILAST
     Dosage: 60 MILLIGRAM
     Route: 048
  3. OTEZLA [Suspect]
     Active Substance: APREMILAST
     Dosage: 20 MILLIGRAM (DAY 2)
     Route: 048
     Dates: start: 20190815, end: 20190815
  4. OTEZLA [Suspect]
     Active Substance: APREMILAST
     Dosage: 40 MILLIGRAM (DAY 4)
     Route: 048
     Dates: start: 20190817, end: 20190817
  5. OTEZLA [Suspect]
     Active Substance: APREMILAST
     Dosage: 20 MILLIGRAM IN MORNING 30 MILLIGRAM IN EVENING (DAY 5)
     Route: 048
     Dates: start: 20190818, end: 20190818
  6. OTEZLA [Suspect]
     Active Substance: APREMILAST
     Dosage: 10 MILLIGRAM IN MORNING 20 MILLIGRAM IN EVENING (DAY 3)
     Route: 048
     Dates: start: 20190816, end: 20190816

REACTIONS (1)
  - Drug ineffective [Unknown]

NARRATIVE: CASE EVENT DATE: 2019
